FAERS Safety Report 8576483-2 (Version None)
Quarter: 2012Q3

REPORT INFORMATION
  Report Type: 
  Country: None (occurrence: None)
  Receive Date: 20120807
  Receipt Date: 20120723
  Transmission Date: 20120928
  Serious: Yes (Hospitalization)
  Sender: FDA-Public Use
  Company Number: PL-ROCHE-1095557

PATIENT
  Age: 45 Year

DRUGS (8)
  1. METOPROLOL TARTRATE [Concomitant]
     Indication: HYPERTENSION
  2. PREDNISONE [Concomitant]
  3. AMLODIPINE [Concomitant]
     Indication: HYPERTENSION
  4. GANCICLOVIR [Suspect]
     Indication: CYTOMEGALOVIRUS INFECTION
     Dosage: FOR 7 DAYS
     Route: 042
  5. ATORVASTATIN [Concomitant]
     Indication: HYPERCHOLESTEROLAEMIA
  6. EVEROLIMUS [Concomitant]
     Indication: IMMUNOSUPPRESSION
  7. FUROSEMIDE [Concomitant]
     Indication: HYPERTENSION
  8. VALGANCICLOVIR [Suspect]
     Indication: CYTOMEGALOVIRUS INFECTION

REACTIONS (2)
  - ACIDOSIS [None]
  - PANCYTOPENIA [None]
